FAERS Safety Report 6313505-3 (Version None)
Quarter: 2009Q3

REPORT INFORMATION
  Report Type: 
  Country: None (occurrence: None)
  Receive Date: 20090814
  Receipt Date: 20090814
  Transmission Date: 20100115
  Serious: Yes (Other)
  Sender: FDA-Public Use
  Company Number: None

PATIENT
  Sex: Female
  Weight: 45.3597 kg

DRUGS (1)
  1. TOPIRAMATE [Suspect]
     Indication: COMPLEX REGIONAL PAIN SYNDROME
     Dosage: 1 BID PO
     Route: 048

REACTIONS (4)
  - CONFUSIONAL STATE [None]
  - HALLUCINATIONS, MIXED [None]
  - PRODUCT SUBSTITUTION ISSUE [None]
  - SOMNOLENCE [None]
